FAERS Safety Report 5954831-7 (Version None)
Quarter: 2008Q4

REPORT INFORMATION
  Report Type: 
  Country: None (occurrence: None)
  Receive Date: 20081117
  Receipt Date: 20081107
  Transmission Date: 20090506
  Serious: Yes (Hospitalization)
  Sender: FDA-Public Use
  Company Number: GB-AMGEN-US315892

PATIENT
  Sex: Female

DRUGS (6)
  1. ENBREL [Suspect]
     Indication: SERONEGATIVE ARTHRITIS
     Dosage: UNKNOWN
     Route: 030
     Dates: start: 20080401
  2. METHOTREXATE [Suspect]
     Indication: DRUG USE FOR UNKNOWN INDICATION
     Route: 058
     Dates: start: 20061001, end: 20080721
  3. AMITRIPTYLINE HCL [Concomitant]
     Dosage: 10MG, FREQUENCY UNSPECIFIED
     Route: 065
  4. HYDROXYCHLOROQUINE SULFATE [Concomitant]
     Route: 048
  5. IRBESARTAN [Concomitant]
     Route: 048
  6. ORLISTAT [Concomitant]
     Dosage: UNKNOWN
     Route: 065

REACTIONS (4)
  - DECREASED APPETITE [None]
  - HEPATIC ENZYME INCREASED [None]
  - PRURITUS [None]
  - WEIGHT DECREASED [None]
